FAERS Safety Report 8375759-1 (Version None)
Quarter: 2012Q1

REPORT INFORMATION
  Report Type: 
  Country: None (occurrence: None)
  Receive Date: 20120323
  Receipt Date: 20111101
  Transmission Date: 20120608
  Serious: Yes (Other)
  Sender: FDA-Public Use
  Company Number: 163-21880-11110445

PATIENT
  Age: 63 Year
  Sex: Male
  Weight: 95.2554 kg

DRUGS (10)
  1. CALCIUM D (OS-CAL) [Concomitant]
  2. MULTI 50+ (MULTIVITAMINS WITH MINERALS) [Concomitant]
  3. AMLODIPINE [Concomitant]
  4. TRAZODONE HCL [Concomitant]
  5. REVLIMID [Suspect]
     Indication: MULTIPLE MYELOMA
     Dosage: 25 MG, 1 IN 1 D, PO
     Route: 048
     Dates: start: 20110115
  6. CHONDROTIN (CHONDROITIN) [Concomitant]
  7. RANITIDINE HYDROCHLORIDE [Concomitant]
  8. DEXAMETHASONE [Concomitant]
  9. ZOMETA [Concomitant]
  10. WARFARIN SODIUM [Concomitant]

REACTIONS (2)
  - THROMBOSIS [None]
  - DRUG DOSE OMISSION [None]
